FAERS Safety Report 21252430 (Version 1)
Quarter: 2022Q3

REPORT INFORMATION
  Report Type: Spontaneous
  Country: US (occurrence: US)
  Receive Date: 20220825
  Receipt Date: 20220825
  Transmission Date: 20221027
  Serious: No
  Sender: FDA-Public Use
  Company Number: US-BIOGEN-2022BI01139958

PATIENT
  Age: 55 Year
  Sex: Female

DRUGS (9)
  1. AVONEX [Suspect]
     Active Substance: INTERFERON BETA-1A
     Indication: Multiple sclerosis
     Route: 050
     Dates: start: 20220711
  2. AVONEX [Suspect]
     Active Substance: INTERFERON BETA-1A
     Route: 050
     Dates: start: 20220711
  3. AVONEX [Suspect]
     Active Substance: INTERFERON BETA-1A
     Dosage: INJECT INTRAMUSCULARLY ONCE WEEKLY, WEEK 1 = 1/4 DOSE, WEEK 2 = 1/2 DOSE, WEEK 3 = 3/4 DOSE, WEEK...
     Route: 050
  4. AVONEX [Suspect]
     Active Substance: INTERFERON BETA-1A
     Route: 050
     Dates: start: 20220711, end: 20220818
  5. RABEPRAZOLE SODIUM [Concomitant]
     Active Substance: RABEPRAZOLE SODIUM
     Route: 050
  6. CLINDAMYCIN HYDROCHLORIDE [Concomitant]
     Active Substance: CLINDAMYCIN HYDROCHLORIDE
     Route: 050
  7. PREDNISONE [Concomitant]
     Active Substance: PREDNISONE
     Route: 050
  8. FOLIC ACID [Concomitant]
     Active Substance: FOLIC ACID
     Route: 050
  9. IRON [Concomitant]
     Active Substance: IRON
     Route: 050

REACTIONS (10)
  - Vision blurred [Not Recovered/Not Resolved]
  - Lymphadenitis [Not Recovered/Not Resolved]
  - Multiple allergies [Unknown]
  - Urinary hesitation [Recovered/Resolved]
  - Injection site pruritus [Recovered/Resolved]
  - Dizziness [Not Recovered/Not Resolved]
  - Headache [Not Recovered/Not Resolved]
  - Hypersensitivity [Unknown]
  - Influenza like illness [Unknown]
  - Injection site bruising [Recovered/Resolved]

NARRATIVE: CASE EVENT DATE: 20220701
